FAERS Safety Report 7121851-9 (Version None)
Quarter: 2010Q4

REPORT INFORMATION
  Report Type: 
  Country: None (occurrence: None)
  Receive Date: 20101124
  Receipt Date: 20101116
  Transmission Date: 20110411
  Serious: Yes (Death, Hospitalization)
  Sender: FDA-Public Use
  Company Number: GR-CELGENEUS-066-21880-10111955

PATIENT
  Sex: Female

DRUGS (2)
  1. REVLIMID [Suspect]
     Route: 048
     Dates: start: 20100426
  2. REVLIMID [Suspect]
     Route: 048
     Dates: start: 20100517, end: 20100101

REACTIONS (2)
  - DEATH [None]
  - HIP FRACTURE [None]
